FAERS Safety Report 17122283 (Version 2)
Quarter: 2019Q4

REPORT INFORMATION
  Report Type: Spontaneous
  Country: AT (occurrence: AT)
  Receive Date: 20191206
  Receipt Date: 20191230
  Transmission Date: 20200122
  Serious: Yes (Hospitalization, Other)
  Sender: FDA-Public Use
  Company Number: AT-EMD SERONO-9132591

PATIENT
  Age: 38 Year
  Sex: Female

DRUGS (3)
  1. MAVENCLAD [Suspect]
     Active Substance: CLADRIBINE
     Dosage: SECOND CYCLE FIRST PART TREATMENT
     Dates: start: 201910
  2. MAVENCLAD [Suspect]
     Active Substance: CLADRIBINE
     Indication: MULTIPLE SCLEROSIS
     Dosage: FIRST CYCLE FIRST PART TREATMENT
     Dates: start: 201810
  3. MAVENCLAD [Suspect]
     Active Substance: CLADRIBINE
     Dosage: FIRST CYCLE SECOND PART TREATMENT
     Dates: start: 201811

REACTIONS (4)
  - Candida sepsis [Unknown]
  - Urinary tract infection enterococcal [Not Recovered/Not Resolved]
  - Headache [Recovered/Resolved]
  - Aspergillus infection [Unknown]
